FAERS Safety Report 10014470 (Version 2)
Quarter: 2014Q2

REPORT INFORMATION
  Report Type: Other
  Country: GB (occurrence: GB)
  Receive Date: 20140317
  Receipt Date: 20140613
  Transmission Date: 20141212
  Serious: Yes (Other)
  Sender: FDA-Public Use
  Company Number: GB-TARO PHARMACEUTICALS U.S.A., INC-2014SUN00542

PATIENT
  Sex: 0

DRUGS (5)
  1. WARFARIN [Suspect]
     Indication: ATRIAL FIBRILLATION
     Dosage: 5.5 MG, UNK
     Route: 048
     Dates: start: 20130717
  2. BISOPROLOL [Concomitant]
  3. SIMVASTATIN [Concomitant]
     Dosage: 20 MG, OD (AT NIGHT)
  4. SOLPADOL [Concomitant]
     Indication: PAIN IN EXTREMITY
     Dosage: 1 DF, OD
  5. PARACETAMOL [Concomitant]
     Indication: PAIN IN EXTREMITY
     Dosage: 1 DF, OD

REACTIONS (1)
  - Urge incontinence [Recovering/Resolving]
